FAERS Safety Report 8893251 (Version 1)
Quarter: 2012Q4

REPORT INFORMATION
  Report Type: Spontaneous
  Country: US (occurrence: None)
  Receive Date: 20121031
  Receipt Date: 20121031
  Transmission Date: 20130627
  Serious: Yes (Hospitalization)
  Sender: FDA-Public Use
  Company Number: ADR-2012-01834

PATIENT
  Sex: Female

DRUGS (4)
  1. BACLOFEN [Suspect]
     Indication: BACK SURGERY
  2. BACLOFEN [Suspect]
     Indication: PAIN
  3. DILAUDID [Concomitant]
  4. BUPIVACAINE [Concomitant]

REACTIONS (3)
  - Toxic encephalopathy [None]
  - Sedation [None]
  - Malaise [None]
